FAERS Safety Report 18973712 (Version 1)
Quarter: 2021Q1

REPORT INFORMATION
  Report Type: Spontaneous
  Country: US (occurrence: US)
  Receive Date: 20210305
  Receipt Date: 20210305
  Transmission Date: 20210420
  Serious: No
  Sender: FDA-Public Use
  Company Number: None

PATIENT
  Age: 35 Year
  Sex: Female

DRUGS (8)
  1. LEVOTHYROXINE 125MCG [Concomitant]
     Active Substance: LEVOTHYROXINE SODIUM
  2. TECFIDERA [Suspect]
     Active Substance: DIMETHYL FUMARATE
     Indication: PRODUCT USED FOR UNKNOWN INDICATION
     Route: 048
     Dates: start: 20210304
  3. NORTRIPTYLINE 10 MG [Concomitant]
     Active Substance: NORTRIPTYLINE
  4. VITAMIN D [Concomitant]
     Active Substance: VITAMIN D NOS
  5. TECFIDERA [Suspect]
     Active Substance: DIMETHYL FUMARATE
     Indication: PRODUCT USED FOR UNKNOWN INDICATION
     Route: 048
     Dates: start: 20210225
  6. CLONAZEPAM 0.5 MG [Concomitant]
     Active Substance: CLONAZEPAM
  7. IBUPROFEN. [Concomitant]
     Active Substance: IBUPROFEN
  8. MAGNESIUM [Concomitant]
     Active Substance: MAGNESIUM

REACTIONS (3)
  - Diarrhoea [None]
  - Nausea [None]
  - Flushing [None]

NARRATIVE: CASE EVENT DATE: 20210304
